FAERS Safety Report 8128842-X (Version None)
Quarter: 2012Q1

REPORT INFORMATION
  Report Type: 
  Country: None (occurrence: None)
  Receive Date: 20120210
  Receipt Date: 20110411
  Transmission Date: 20120608
  Serious: No
  Sender: FDA-Public Use
  Company Number: US-BRISTOL-MYERS SQUIBB COMPANY-15642622

PATIENT
  Age: 36 Year
  Sex: Female

DRUGS (4)
  1. ADVAIR DISKUS 100/50 [Concomitant]
     Indication: ASTHMA
  2. PREDNISONE TAB [Suspect]
  3. ACTONEL [Concomitant]
  4. ORENCIA [Suspect]
     Indication: RHEUMATOID ARTHRITIS
     Dosage: STOPPED IN JAN08,RESTARTED IN 2011 DAILY DOSE:0,2,2,Q4WEEKS
     Route: 042

REACTIONS (1)
  - BRONCHITIS [None]
